FAERS Safety Report 22827874 (Version 4)
Quarter: 2024Q2

REPORT INFORMATION
  Report Type: Spontaneous
  Country: US (occurrence: US)
  Receive Date: 20230816
  Receipt Date: 20240411
  Transmission Date: 20240716
  Serious: Yes (Other)
  Sender: FDA-Public Use
  Company Number: US-PFIZER INC-202300275250

PATIENT
  Age: 50 Year
  Sex: Male

DRUGS (3)
  1. OXBRYTA [Suspect]
     Active Substance: VOXELOTOR
     Indication: Sickle cell disease
     Dosage: 1500 MG, 1X/DAY
     Route: 048
  2. OXBRYTA [Suspect]
     Active Substance: VOXELOTOR
     Dosage: 1500 MG, 1X/DAY
     Route: 048
  3. OXBRYTA [Suspect]
     Active Substance: VOXELOTOR
     Dosage: 500MG, 3 TABLETS ONCE DAILY
     Route: 048

REACTIONS (10)
  - Haemolysis [Unknown]
  - Blood bilirubin decreased [Unknown]
  - Blood iron decreased [Unknown]
  - Weight increased [Unknown]
  - Fluid retention [Unknown]
  - Dysphagia [Unknown]
  - Pulmonary mass [Unknown]
  - Exfoliative rash [Unknown]
  - Haemoglobin decreased [Unknown]
  - Full blood count abnormal [Unknown]
